FAERS Safety Report 7699451-1 (Version None)
Quarter: 2011Q3

REPORT INFORMATION
  Report Type: 
  Country: None (occurrence: None)
  Receive Date: 20110820
  Receipt Date: 20101025
  Transmission Date: 20111222
  Serious: No
  Sender: FDA-Public Use
  Company Number: US-ALLERGAN-1013667US

PATIENT
  Age: 70 Year
  Sex: Female

DRUGS (2)
  1. SANCTURA XR [Suspect]
     Indication: POLLAKIURIA
     Dosage: 60 MG, QD
     Route: 048
     Dates: start: 20101020, end: 20101023
  2. DIGOXIN [Concomitant]
     Indication: CARDIAC DISORDER
     Dosage: 1.25 MG, UNK
     Route: 048

REACTIONS (2)
  - MUSCLE SPASMS [None]
  - PAIN IN EXTREMITY [None]
